FAERS Safety Report 17454188 (Version 1)
Quarter: 2020Q1

REPORT INFORMATION
  Report Type: Spontaneous
  Country: US (occurrence: US)
  Receive Date: 20200224
  Receipt Date: 20200224
  Transmission Date: 20200409
  Serious: Yes (Death)
  Sender: FDA-Public Use
  Company Number: None

PATIENT
  Age: 56 Year
  Sex: Male
  Weight: 114 kg

DRUGS (12)
  1. FOSAPREPITANT 150MG [Concomitant]
  2. SERTALINE 100MG [Concomitant]
  3. LISINOPRIL. [Concomitant]
     Active Substance: LISINOPRIL
  4. FERROUS SULFATE 325 MG [Concomitant]
  5. DULOXETINE 20MG [Concomitant]
     Active Substance: DULOXETINE
  6. CYCLOPHOSPHAMIDE. [Suspect]
     Active Substance: CYCLOPHOSPHAMIDE
     Indication: BREAST CANCER FEMALE
     Dosage: ?          OTHER FREQUENCY:Q 3 WEEKS;?
     Route: 042
     Dates: start: 20191122
  7. APAP 325MG [Concomitant]
  8. OMEPRAZOLE 10MG [Concomitant]
     Active Substance: OMEPRAZOLE
  9. AMLODIPINE [Concomitant]
     Active Substance: AMLODIPINE BESYLATE
  10. DOCETAXEL. [Suspect]
     Active Substance: DOCETAXEL
     Indication: BREAST CANCER FEMALE
     Dosage: ?          OTHER FREQUENCY:Q 3 WEEKS;?
     Route: 042
     Dates: start: 20191122
  11. ATORVASTATIN 10MG [Concomitant]
     Active Substance: ATORVASTATIN
  12. CHLORTHALIDONE 25MG [Concomitant]
     Active Substance: CHLORTHALIDONE

REACTIONS (1)
  - Death [None]

NARRATIVE: CASE EVENT DATE: 20200128
